FAERS Safety Report 6355216-4 (Version None)
Quarter: 2009Q3

REPORT INFORMATION
  Report Type: 
  Country: None (occurrence: None)
  Receive Date: 20090914
  Receipt Date: 20090914
  Transmission Date: 20100115
  Serious: Yes (Other)
  Sender: FDA-Public Use
  Company Number: US-PFIZER INC-2009255634

PATIENT
  Sex: Female
  Weight: 90.718 kg

DRUGS (9)
  1. XALATAN [Suspect]
     Indication: GLAUCOMA
     Dosage: 0.005 %, 1X/DAY
     Route: 047
     Dates: start: 20050101
  2. HYDROCHLOROTHIAZIDE [Concomitant]
     Dosage: 50 MG, 1X/DAY
     Route: 048
  3. GLYBURIDE [Concomitant]
     Indication: DIABETES MELLITUS
     Dosage: 5 MG, 2X/DAY
     Route: 048
     Dates: start: 20020101
  4. ACETYLSALICYLIC ACID [Concomitant]
     Dosage: 81 MG, 1X/DAY
     Route: 048
  5. SYNTHROID [Concomitant]
     Dosage: 5 UG, 1X/DAY
     Route: 048
  6. POTASSIUM CHLORIDE [Concomitant]
  7. METFORMIN [Concomitant]
     Indication: DIABETES MELLITUS
     Dosage: 500 MG, 2X/DAY
     Route: 048
     Dates: start: 20080101
  8. WARFARIN SODIUM [Concomitant]
     Dosage: 5 MG, UNK
  9. ZOCOR [Concomitant]
     Indication: BLOOD CHOLESTEROL INCREASED
     Dosage: 20 MG, 1X/DAY
     Route: 048

REACTIONS (3)
  - CARDIAC PACEMAKER INSERTION [None]
  - EYELIDS PRURITUS [None]
  - OCULAR HYPERAEMIA [None]
